FAERS Safety Report 7125617-5 (Version None)
Quarter: 2010Q4

REPORT INFORMATION
  Report Type: 
  Country: None (occurrence: None)
  Receive Date: 20101129
  Receipt Date: 20101116
  Transmission Date: 20110411
  Serious: Yes (Hospitalization)
  Sender: FDA-Public Use
  Company Number: FR-JNJFOC-20101105782

PATIENT
  Age: 87 Year
  Sex: Female

DRUGS (7)
  1. DURAGESIC-100 [Suspect]
     Indication: PAIN
     Route: 062
  2. MORPHINE [Suspect]
     Indication: PAIN
     Route: 065
  3. THALIDOMIDE [Concomitant]
     Dosage: THALIDOMIDE CELGENE*
     Route: 065
  4. LEVOTHYROXINE SODIUM [Concomitant]
     Route: 048
  5. KARDEGIC [Concomitant]
     Route: 048
  6. OMEPRAZOLE [Concomitant]
     Route: 065
  7. DAFALGAN [Concomitant]
     Route: 048

REACTIONS (15)
  - ABNORMAL BEHAVIOUR [None]
  - BLOOD CREATINE PHOSPHOKINASE INCREASED [None]
  - BONE PAIN [None]
  - BUNDLE BRANCH BLOCK RIGHT [None]
  - CONFUSIONAL STATE [None]
  - DEHYDRATION [None]
  - DISORIENTATION [None]
  - DISTURBANCE IN ATTENTION [None]
  - ELECTROCARDIOGRAM REPOLARISATION ABNORMALITY [None]
  - FALL [None]
  - HYPONATRAEMIA [None]
  - INFECTION [None]
  - MENTAL IMPAIRMENT [None]
  - MYOGLOBIN BLOOD INCREASED [None]
  - OVERDOSE [None]
